FAERS Safety Report 4871056-7 (Version None)
Quarter: 2005Q4

REPORT INFORMATION
  Report Type: 
  Country: None (occurrence: None)
  Receive Date: 20051229
  Receipt Date: 20051221
  Transmission Date: 20060501
  Serious: Yes (Hospitalization, Other)
  Sender: FDA-Public Use
  Company Number: FRWYE254521DEC05

PATIENT
  Age: 78 Year
  Sex: Female

DRUGS (3)
  1. BISOPROLOL FUMARATE [Suspect]
     Dosage: 10 MG 1X PER 1 DAY ORAL
     Route: 048
     Dates: start: 19960101
  2. MEDIATENSYL (URAPIDIL, , 0) [Suspect]
     Dosage: 60 MG 1X PER 1 DAY ORAL
     Route: 048
  3. ALLOPURINOL [Suspect]
     Dosage: ORAL
     Route: 048

REACTIONS (3)
  - ARTHRITIS [None]
  - LUPUS-LIKE SYNDROME [None]
  - PYREXIA [None]
